FAERS Safety Report 7210963-7 (Version None)
Quarter: 2011Q1

REPORT INFORMATION
  Report Type: 
  Country: None (occurrence: None)
  Receive Date: 20110105
  Receipt Date: 20101230
  Transmission Date: 20110831
  Serious: Yes (Other)
  Sender: FDA-Public Use
  Company Number: A0902063A

PATIENT
  Age: 68 Year
  Sex: Female

DRUGS (5)
  1. ADVAIR [Suspect]
     Indication: CHRONIC OBSTRUCTIVE PULMONARY DISEASE
     Dosage: 1PUFF TWICE PER DAY
     Route: 055
     Dates: start: 20100101
  2. BUPROPION [Concomitant]
  3. ASPIRIN [Concomitant]
  4. SPIRIVA [Concomitant]
  5. AMLODIPINE [Concomitant]

REACTIONS (4)
  - COUGH [None]
  - PRODUCT QUALITY ISSUE [None]
  - DYSPNOEA [None]
  - CHOKING [None]
